FAERS Safety Report 6882353-8 (Version None)
Quarter: 2010Q3

REPORT INFORMATION
  Report Type: 
  Country: None (occurrence: None)
  Receive Date: 20100729
  Receipt Date: 20100416
  Transmission Date: 20110219
  Serious: No
  Sender: FDA-Public Use
  Company Number: US-MYLANLABS-2010S1006550

PATIENT
  Sex: Female

DRUGS (3)
  1. LEVOTHYROXINE SODIUM [Suspect]
     Indication: HYPOTHYROIDISM
     Route: 048
     Dates: start: 20100414
  2. SUDAFED 12 HOUR [Concomitant]
     Indication: HYPERSENSITIVITY
  3. MOTRIN [Concomitant]
     Indication: PAIN

REACTIONS (4)
  - FEELING COLD [None]
  - FLUSHING [None]
  - HEADACHE [None]
  - NAUSEA [None]
